FAERS Safety Report 7213720-0 (Version None)
Quarter: 2011Q1

REPORT INFORMATION
  Report Type: 
  Country: None (occurrence: None)
  Receive Date: 20110106
  Receipt Date: 20101229
  Transmission Date: 20110831
  Serious: Yes (Congenital Anomaly)
  Sender: FDA-Public Use
  Company Number: ES-GILEAD-2010-0034673

PATIENT
  Weight: 1.47 kg

DRUGS (5)
  1. TRUVADA [Suspect]
     Indication: PRODUCT USED FOR UNKNOWN INDICATION
     Route: 064
     Dates: start: 20080930
  2. PREZISTA [Concomitant]
     Route: 064
     Dates: start: 20080930
  3. ISENTRESS [Concomitant]
     Route: 064
     Dates: start: 20080930
  4. NORVIR [Concomitant]
     Route: 064
     Dates: start: 20080930
  5. COMBIVIR [Concomitant]
     Route: 064
     Dates: start: 20100318

REACTIONS (1)
  - CONGENITAL ANOMALY [None]
